FAERS Safety Report 8251608-7 (Version None)
Quarter: 2012Q1

REPORT INFORMATION
  Report Type: 
  Country: None (occurrence: None)
  Receive Date: 20120328
  Receipt Date: 20120316
  Transmission Date: 20120608
  Serious: Yes (Other)
  Sender: FDA-Public Use
  Company Number: 2012MA003513

PATIENT
  Age: 59 Year
  Sex: Female

DRUGS (5)
  1. SOMA [Concomitant]
  2. LORTAB [Concomitant]
  3. LORAZEPAM [Suspect]
     Indication: ANXIETY
     Dosage: 2 MG;PRN;PO
     Route: 048
  4. COUMADIN [Concomitant]
  5. OXYCONTIN [Concomitant]

REACTIONS (9)
  - REFUSAL OF TREATMENT BY PATIENT [None]
  - ACCIDENTAL OVERDOSE [None]
  - LOSS OF CONSCIOUSNESS [None]
  - INCOHERENT [None]
  - DEPRESSION [None]
  - WITHDRAWAL SYNDROME [None]
  - SELF-MEDICATION [None]
  - UNRESPONSIVE TO STIMULI [None]
  - FALL [None]
